FAERS Safety Report 24973064 (Version 2)
Quarter: 2025Q1

REPORT INFORMATION
  Report Type: Report from Study
  Country: DE (occurrence: DE)
  Receive Date: 20250216
  Receipt Date: 20250302
  Transmission Date: 20250409
  Serious: Yes (Other)
  Sender: AUROBINDO
  Company Number: DE-UCBSA-2024014653

PATIENT
  Age: 31 Year
  Sex: Female

DRUGS (15)
  1. TOPIRAMATE [Interacting]
     Active Substance: TOPIRAMATE
     Indication: Occipital lobe epilepsy
     Dosage: 200 MILLIGRAM, ONCE A DAY
     Route: 065
  2. CARBAMAZEPINE [Suspect]
     Active Substance: CARBAMAZEPINE
     Indication: Occipital lobe epilepsy
     Route: 065
  3. LAMOTRIGINE [Suspect]
     Active Substance: LAMOTRIGINE
     Indication: Epilepsy
     Route: 065
  4. LAMOTRIGINE [Suspect]
     Active Substance: LAMOTRIGINE
     Indication: Occipital lobe epilepsy
  5. LEVETIRACETAM [Suspect]
     Active Substance: LEVETIRACETAM
     Indication: Epilepsy
     Route: 065
  6. LEVETIRACETAM [Suspect]
     Active Substance: LEVETIRACETAM
     Indication: Occipital lobe epilepsy
  7. ZONISAMIDE [Suspect]
     Active Substance: ZONISAMIDE
     Indication: Occipital lobe epilepsy
     Route: 065
  8. GABAPENTIN [Suspect]
     Active Substance: GABAPENTIN
     Indication: Occipital lobe epilepsy
     Route: 065
  9. BRIVARACETAM [Interacting]
     Active Substance: BRIVARACETAM
     Indication: Occipital lobe epilepsy
     Dosage: 200 MILLIGRAM, ONCE A DAY
     Route: 065
  10. BRIVARACETAM [Interacting]
     Active Substance: BRIVARACETAM
     Indication: Epilepsy
  11. VALPROATE [Suspect]
     Active Substance: VALPROIC ACID
     Indication: Occipital lobe epilepsy
     Route: 065
  12. OXCARBAZEPINE [Suspect]
     Active Substance: OXCARBAZEPINE
     Indication: Occipital lobe epilepsy
     Route: 065
  13. PERAMPANEL [Suspect]
     Active Substance: PERAMPANEL
     Indication: Occipital lobe epilepsy
     Route: 065
  14. FOLIC ACID [Suspect]
     Active Substance: FOLIC ACID
     Indication: Supplementation therapy
     Dosage: 0.8 MILLIGRAM, ONCE A DAY
     Route: 065
  15. FOLIC ACID [Suspect]
     Active Substance: FOLIC ACID
     Indication: Occipital lobe epilepsy
     Dosage: 5 MILLIGRAM, ONCE A DAY
     Route: 065

REACTIONS (10)
  - Drug ineffective [Unknown]
  - Adverse drug reaction [Unknown]
  - Multiple-drug resistance [Unknown]
  - Drug level increased [Unknown]
  - Maternal exposure during pregnancy [Unknown]
  - Maternal exposure before pregnancy [Unknown]
  - Maternal exposure during breast feeding [Unknown]
  - Drug interaction [Unknown]
  - Off label use [Unknown]
  - Drug intolerance [Unknown]

NARRATIVE: CASE EVENT DATE: 20210101
